FAERS Safety Report 13378263 (Version 1)
Quarter: 2017Q1

REPORT INFORMATION
  Report Type: Spontaneous
  Country: FR (occurrence: FR)
  Receive Date: 20170328
  Receipt Date: 20170328
  Transmission Date: 20170429
  Serious: Yes (Hospitalization)
  Sender: FDA-Public Use
  Company Number: FR-IPCA LABORATORIES LIMITED-IPC201703-000325

PATIENT
  Age: 32 Year
  Sex: Female

DRUGS (1)
  1. CHLOROQUINE PHOSPHATE. [Suspect]
     Active Substance: CHLOROQUINE PHOSPHATE
     Dosage: INGESTED DOSE OF 9.5 G

REACTIONS (6)
  - Intentional overdose [Unknown]
  - Hyperlactacidaemia [Recovered/Resolved]
  - Toxicity to various agents [Unknown]
  - Cardiotoxicity [Recovered/Resolved]
  - Cardiogenic shock [Recovered/Resolved]
  - Hypokalaemia [Recovered/Resolved]
